FAERS Safety Report 4547409-3 (Version None)
Quarter: 2005Q1

REPORT INFORMATION
  Report Type: 
  Country: None (occurrence: None)
  Receive Date: 20050107
  Receipt Date: 20050104
  Transmission Date: 20050727
  Serious: Yes (Death)
  Sender: FDA-Public Use
  Company Number: US-ROCHE-391344

PATIENT
  Age: 23 Year
  Sex: Male
  Weight: 65.8 kg

DRUGS (1)
  1. ACCUTANE [Suspect]
     Indication: FACE OEDEMA
     Route: 065
     Dates: start: 20040101, end: 20041020

REACTIONS (2)
  - COMPLETED SUICIDE [None]
  - PHOTOSENSITIVITY REACTION [None]
